FAERS Safety Report 8916617 (Version 2)
Quarter: 2013Q2

REPORT INFORMATION
  Report Type: Spontaneous
  Country: US (occurrence: US)
  Receive Date: 20121120
  Receipt Date: 20130509
  Transmission Date: 20140414
  Serious: No
  Sender: FDA-Public Use
  Company Number: US-ASTRAZENECA-2012SE84906

PATIENT
  Age: 80 Year
  Sex: Female

DRUGS (2)
  1. SYMBICORT PMDI [Suspect]
     Dosage: 160/4.5 UNKNOWN
     Route: 055
  2. SPIRIVA [Concomitant]

REACTIONS (1)
  - Dyspnoea exertional [Unknown]
